FAERS Safety Report 8809182 (Version 4)
Quarter: 2013Q1

REPORT INFORMATION
  Report Type: Spontaneous
  Country: AE (occurrence: AE)
  Receive Date: 20120926
  Receipt Date: 20130304
  Transmission Date: 20140127
  Serious: Yes (Other)
  Sender: FDA-Public Use
  Company Number: AE-ABBOTT-12P-166-0983867-00

PATIENT
  Age: 28 Year
  Sex: Male
  Weight: 68 kg

DRUGS (1)
  1. HUMIRA [Suspect]
     Indication: ANKYLOSING SPONDYLITIS
     Route: 058

REACTIONS (7)
  - Weight decreased [Unknown]
  - Hepatitis C [Unknown]
  - Pyrexia [Unknown]
  - Decreased appetite [Unknown]
  - Cough [Unknown]
  - Red blood cell sedimentation rate increased [Unknown]
  - C-reactive protein increased [Unknown]
